FAERS Safety Report 12346723 (Version 1)
Quarter: 2016Q2

REPORT INFORMATION
  Report Type: Spontaneous
  Country: US (occurrence: US)
  Receive Date: 20160509
  Receipt Date: 20160509
  Transmission Date: 20160815
  Serious: Yes (Hospitalization, Other)
  Sender: FDA-Public Use
  Company Number: US-SHIRE-US201605171

PATIENT
  Age: 56 Year
  Sex: Female
  Weight: 59.86 kg

DRUGS (1)
  1. GATTEX [Suspect]
     Active Substance: TEDUGLUTIDE\WATER
     Indication: MALABSORPTION
     Dosage: 0.30 ML, UNKNOWN
     Route: 058
     Dates: start: 20160329

REACTIONS (1)
  - Lyme disease [Unknown]

NARRATIVE: CASE EVENT DATE: 20160427
